FAERS Safety Report 18810079 (Version 3)
Quarter: 2021Q2

REPORT INFORMATION
  Report Type: Spontaneous
  Country: IT (occurrence: IT)
  Receive Date: 20210129
  Receipt Date: 20210428
  Transmission Date: 20210717
  Serious: Yes (Hospitalization)
  Sender: FDA-Public Use
  Company Number: IT-PFIZER INC-2021061206

PATIENT
  Age: 7 Year
  Sex: Female

DRUGS (6)
  1. AMIKACIN. [Interacting]
     Active Substance: AMIKACIN
     Indication: MENINGOENCEPHALITIS BACTERIAL
  2. ISONIAZID. [Suspect]
     Active Substance: ISONIAZID
     Indication: MENINGOENCEPHALITIS BACTERIAL
  3. LINEZOLID. [Suspect]
     Active Substance: LINEZOLID
     Indication: MENINGOENCEPHALITIS BACTERIAL
  4. ETHAMBUTOL [Interacting]
     Active Substance: ETHAMBUTOL HYDROCHLORIDE
     Indication: MENINGOENCEPHALITIS BACTERIAL
  5. CYCLOSERINE. [Interacting]
     Active Substance: CYCLOSERINE
     Indication: MENINGOENCEPHALITIS BACTERIAL
  6. MOXIFLOXACIN. [Interacting]
     Active Substance: MOXIFLOXACIN
     Indication: MENINGOENCEPHALITIS BACTERIAL

REACTIONS (9)
  - Neurotoxicity [Recovering/Resolving]
  - Encephalitis [Recovering/Resolving]
  - Vertigo [Recovering/Resolving]
  - Fine motor skill dysfunction [Recovering/Resolving]
  - Off label use [Unknown]
  - Dysdiadochokinesis [Recovering/Resolving]
  - Ataxia [Recovering/Resolving]
  - Drug interaction [Recovering/Resolving]
  - Dysmetria [Recovering/Resolving]
